FAERS Safety Report 24213446 (Version 1)
Quarter: 2024Q3

REPORT INFORMATION
  Report Type: Spontaneous
  Country: US (occurrence: None)
  Receive Date: 20240815
  Receipt Date: 20240815
  Transmission Date: 20241017
  Serious: Yes (Hospitalization)
  Sender: Public
  Company Number: None

PATIENT
  Age: 20 Year
  Sex: Male
  Weight: 71 kg

DRUGS (4)
  1. CYCLOPHOSPHAMIDE [Suspect]
     Active Substance: CYCLOPHOSPHAMIDE
     Dates: end: 20240726
  2. DACTINOMYCIN [Suspect]
     Active Substance: DACTINOMYCIN
     Dates: end: 20240726
  3. VINCRISTINE SULFATE [Suspect]
     Active Substance: VINCRISTINE SULFATE
     Dates: end: 20240627
  4. VINORELBINE TARTRATE [Suspect]
     Active Substance: VINORELBINE TARTRATE
     Dates: end: 20240726

REACTIONS (3)
  - Neuropathy peripheral [None]
  - Hypoaesthesia [None]
  - Hyperaesthesia [None]

NARRATIVE: CASE EVENT DATE: 20240808
